FAERS Safety Report 20718680 (Version 1)
Quarter: 2022Q2

REPORT INFORMATION
  Report Type: Spontaneous
  Country: US (occurrence: US)
  Receive Date: 20220418
  Receipt Date: 20220418
  Transmission Date: 20220721
  Serious: No
  Sender: FDA-Public Use
  Company Number: US-ALVOGEN-2021-ALVOGEN-117588

PATIENT
  Age: 86 Year
  Sex: Female

DRUGS (1)
  1. ATENOLOL [Suspect]
     Active Substance: ATENOLOL
     Indication: Product used for unknown indication

REACTIONS (5)
  - Rash [Unknown]
  - Pruritus [Unknown]
  - Lip swelling [Unknown]
  - Mouth swelling [Unknown]
  - Swollen tongue [Unknown]
